FAERS Safety Report 4957885-X (Version None)
Quarter: 2006Q1

REPORT INFORMATION
  Report Type: 
  Country: None (occurrence: None)
  Receive Date: 20060330
  Receipt Date: 20060224
  Transmission Date: 20060701
  Serious: Yes (Life-Threatening, Hospitalization, Other)
  Sender: FDA-Public Use
  Company Number: 2006AP00986

PATIENT
  Age: 61 Year
  Sex: Female

DRUGS (1)
  1. XYLOCAINE W/ EPINEPHRINE [Suspect]
     Indication: INFILTRATION ANAESTHESIA
     Dosage: 1.5 ML ADMINISTERED TO HEAD AND FACE
     Route: 058
     Dates: start: 20060220, end: 20060220

REACTIONS (3)
  - ANAPHYLACTIC SHOCK [None]
  - PROCEDURAL COMPLICATION [None]
  - SHOCK [None]
